FAERS Safety Report 19313905 (Version 1)
Quarter: 2021Q2

REPORT INFORMATION
  Report Type: Spontaneous
  Country: US (occurrence: US)
  Receive Date: 20210527
  Receipt Date: 20210527
  Transmission Date: 20210717
  Serious: No
  Sender: FDA-Public Use
  Company Number: None

PATIENT
  Age: 64 Year
  Sex: Male
  Weight: 92.25 kg

DRUGS (1)
  1. 90 LISINOPRIL TAB 10MG. GENERIC OF PRINIVIL/ZESTRIL [Suspect]
     Active Substance: LISINOPRIL
     Indication: BLOOD PRESSURE MEASUREMENT
     Dosage: ?          QUANTITY:1 TABLET(S);?
     Route: 048
     Dates: start: 20210503, end: 20210525

REACTIONS (5)
  - Urticaria [None]
  - Histamine level increased [None]
  - Pruritus [None]
  - Product formulation issue [None]
  - Swelling [None]

NARRATIVE: CASE EVENT DATE: 20210503
